FAERS Safety Report 23151428 (Version 3)
Quarter: 2023Q4

REPORT INFORMATION
  Report Type: Spontaneous
  Country: US (occurrence: US)
  Receive Date: 20231107
  Receipt Date: 20231205
  Transmission Date: 20240110
  Serious: No
  Sender: FDA-Public Use
  Company Number: US-AMGEN-USASP2023194743

PATIENT
  Age: 49 Year
  Sex: Female
  Weight: 55.1 kg

DRUGS (3)
  1. NEULASTA [Suspect]
     Active Substance: PEGFILGRASTIM
     Indication: Neutropenia
     Dosage: UNK
     Route: 065
  2. NEULASTA [Suspect]
     Active Substance: PEGFILGRASTIM
     Dosage: UNK
     Route: 065
  3. TRABECTEDIN [Concomitant]
     Active Substance: TRABECTEDIN

REACTIONS (3)
  - Device issue [Unknown]
  - Needle issue [Unknown]
  - Application site pain [Unknown]

NARRATIVE: CASE EVENT DATE: 20231024
